FAERS Safety Report 6750532-6 (Version None)
Quarter: 2010Q2

REPORT INFORMATION
  Report Type: 
  Country: None (occurrence: None)
  Receive Date: 20100528
  Receipt Date: 20100528
  Transmission Date: 20101027
  Serious: Yes (Hospitalization)
  Sender: FDA-Public Use
  Company Number: None

PATIENT
  Age: 77 Year
  Sex: Male
  Weight: 68.3 kg

DRUGS (1)
  1. ENOXAPARIN SODIUM [Suspect]
     Indication: DEEP VEIN THROMBOSIS
     Dosage: 80 MG BID SQ
     Route: 058
     Dates: start: 20100428, end: 20100429

REACTIONS (4)
  - ABDOMINAL PAIN [None]
  - ANAEMIA [None]
  - HAEMATOMA [None]
  - THROMBOCYTOPENIA [None]
